FAERS Safety Report 22626563 (Version 1)
Quarter: 2023Q2

REPORT INFORMATION
  Report Type: Report from Study
  Country: CA (occurrence: CA)
  Receive Date: 20230621
  Receipt Date: 20230621
  Transmission Date: 20230721
  Serious: Yes (Other)
  Sender: FDA-Public Use
  Company Number: CA-GILEAD-2023-0632101

PATIENT
  Age: 37 Year
  Sex: Female

DRUGS (10)
  1. SACITUZUMAB GOVITECAN-HZIY [Suspect]
     Active Substance: SACITUZUMAB GOVITECAN-HZIY
     Indication: Triple negative breast cancer
     Dosage: 540 MG
     Route: 042
     Dates: start: 20230531
  2. CYCLOPHOSPHAMIDE\DOXORUBICIN HYDROCHLORIDE [Concomitant]
     Active Substance: CYCLOPHOSPHAMIDE\DOXORUBICIN HYDROCHLORIDE
  3. EXEMESTANE [Concomitant]
     Active Substance: EXEMESTANE
  4. TAMOXIFEN [Concomitant]
     Active Substance: TAMOXIFEN
  5. TAXOL [Concomitant]
     Active Substance: PACLITAXEL
  6. GOSERELIN [Concomitant]
     Active Substance: GOSERELIN
  7. ZOMETA [Concomitant]
     Active Substance: ZOLEDRONIC ACID
  8. APIXABAN [Concomitant]
     Active Substance: APIXABAN
     Dates: end: 20230523
  9. LEVOTHYROXINE [Concomitant]
     Active Substance: LEVOTHYROXINE
  10. PREGABALIN [Concomitant]
     Active Substance: PREGABALIN

REACTIONS (3)
  - Disease progression [Unknown]
  - Inappropriate schedule of product administration [Unknown]
  - Full blood count decreased [Unknown]

NARRATIVE: CASE EVENT DATE: 20230606
